FAERS Safety Report 9174311 (Version 1)
Quarter: 2013Q1

REPORT INFORMATION
  Report Type: Spontaneous
  Country: US (occurrence: None)
  Receive Date: 20130318
  Receipt Date: 20130318
  Transmission Date: 20140127
  Serious: Yes (Hospitalization, Other)
  Sender: FDA-Public Use
  Company Number: None

PATIENT
  Age: 72 Year
  Sex: Male

DRUGS (1)
  1. ZYTIGA [Suspect]
     Dosage: 1000 MG DAILY PO
     Route: 048
     Dates: start: 20130221, end: 20130308

REACTIONS (3)
  - Renal failure acute [None]
  - General physical health deterioration [None]
  - Prostatic specific antigen abnormal [None]
